FAERS Safety Report 12590992 (Version 1)
Quarter: 2016Q3

REPORT INFORMATION
  Report Type: Spontaneous
  Country: US (occurrence: US)
  Receive Date: 20160726
  Receipt Date: 20160726
  Transmission Date: 20161109
  Serious: No
  Sender: FDA-Public Use
  Company Number: US-UNITED THERAPEUTICS-UNT-2016-007041

PATIENT
  Age: 44 Year
  Sex: Female
  Weight: 102.4 kg

DRUGS (2)
  1. ORENITRAM [Suspect]
     Active Substance: TREPROSTINIL
     Indication: PULMONARY HYPERTENSION
     Dosage: 1 MG, TID
     Route: 048
     Dates: start: 20160329, end: 20160617
  2. ADCIRCA [Concomitant]
     Active Substance: TADALAFIL
     Indication: PRODUCT USED FOR UNKNOWN INDICATION

REACTIONS (6)
  - Asthenia [Unknown]
  - Rash erythematous [Unknown]
  - Fatigue [Unknown]
  - Nausea [Unknown]
  - Chills [Unknown]
  - Tearfulness [Unknown]

NARRATIVE: CASE EVENT DATE: 201604
